FAERS Safety Report 16570763 (Version 1)
Quarter: 2019Q3

REPORT INFORMATION
  Report Type: Spontaneous
  Country: US (occurrence: US)
  Receive Date: 20190531
  Receipt Date: 20190531
  Transmission Date: 20191004
  Serious: Yes (Life-Threatening, Hospitalization)
  Sender: FDA-Public Use
  Company Number: None

PATIENT
  Age: 79 Year
  Sex: Male
  Weight: 75.02 kg

DRUGS (3)
  1. LISINOPRIL. [Suspect]
     Active Substance: LISINOPRIL
     Indication: DIABETES MELLITUS
     Route: 048
     Dates: start: 19980203, end: 20190423
  2. CILASTATIN/IMIPENEM [Suspect]
     Active Substance: CILASTATIN SODIUM\IMIPENEM
     Indication: POSTOPERATIVE WOUND INFECTION
     Dates: start: 20190422, end: 20190423
  3. LISINOPRIL. [Suspect]
     Active Substance: LISINOPRIL
     Indication: HYPERTENSION
     Route: 048
     Dates: start: 19980203, end: 20190423

REACTIONS (5)
  - Postoperative wound infection [None]
  - Pseudomonas infection [None]
  - Angioedema [None]
  - Enterococcal infection [None]
  - Drug resistance [None]

NARRATIVE: CASE EVENT DATE: 20190423
